FAERS Safety Report 5195167-4 (Version None)
Quarter: 2006Q4

REPORT INFORMATION
  Report Type: 
  Country: None (occurrence: None)
  Receive Date: 20061229
  Receipt Date: 20061228
  Transmission Date: 20070319
  Serious: Yes (Death, Other)
  Sender: FDA-Public Use
  Company Number: UG-BOEHRINGER INGELHEIM PHARMACEUTICALS, INC.-2006-DE-06886GD

PATIENT

DRUGS (1)
  1. TRIOMUNE [Suspect]
     Indication: HIV INFECTION

REACTIONS (7)
  - ABDOMINAL DISCOMFORT [None]
  - DYSPNOEA [None]
  - FATIGUE [None]
  - HEPATIC STEATOSIS [None]
  - LACTIC ACIDOSIS [None]
  - NEUROPATHY PERIPHERAL [None]
  - VOMITING [None]
